FAERS Safety Report 4902974-9 (Version None)
Quarter: 2006Q1

REPORT INFORMATION
  Report Type: 
  Country: None (occurrence: None)
  Receive Date: 20060207
  Receipt Date: 20060201
  Transmission Date: 20060701
  Serious: Yes (Disabling, Other)
  Sender: FDA-Public Use
  Company Number: GB-MERCK-0602GBR00016

PATIENT
  Age: 43 Year
  Sex: Male
  Weight: 158 kg

DRUGS (2)
  1. LERCANIDIPINE [Concomitant]
     Route: 048
     Dates: start: 20051215
  2. COZAAR [Suspect]
     Route: 048
     Dates: start: 20051017, end: 20060105

REACTIONS (1)
  - FOOT FRACTURE [None]
